FAERS Safety Report 4771314-0 (Version None)
Quarter: 2005Q3

REPORT INFORMATION
  Report Type: 
  Country: None (occurrence: None)
  Receive Date: 20050915
  Receipt Date: 20041112
  Transmission Date: 20060218
  Serious: Yes (Life-Threatening, Hospitalization, Disabling)
  Sender: FDA-Public Use
  Company Number: DE-MERCK-0411DEU00417

PATIENT
  Age: 79 Year
  Sex: Female

DRUGS (9)
  1. MEBEVERINE HYDROCHLORIDE [Concomitant]
     Indication: DIVERTICULUM
     Route: 048
  2. CHOLECALCIFEROL [Concomitant]
     Indication: OSTEOPOROSIS
     Route: 048
  3. PHENPROCOUMON [Suspect]
     Indication: PULMONARY EMBOLISM
     Route: 048
     Dates: start: 19990101, end: 20040101
  4. PHENPROCOUMON [Suspect]
     Indication: DEEP VEIN THROMBOSIS
     Route: 048
     Dates: start: 19990101, end: 20040101
  5. DILTIAZEM HYDROCHLORIDE [Concomitant]
     Indication: CORONARY ARTERY DISEASE
     Route: 048
     Dates: start: 20000101, end: 20041201
  6. VIOXX [Suspect]
     Route: 048
     Dates: start: 20020701, end: 20040901
  7. LEVOTHYROXINE SODIUM [Concomitant]
     Indication: HYPOTHYROIDISM
     Route: 048
     Dates: start: 19850101
  8. BETAHISTINE HYDROCHLORIDE [Concomitant]
     Indication: DIZZINESS
     Route: 048
  9. VASOTEC RPD [Concomitant]
     Indication: HYPERTENSION
     Route: 048

REACTIONS (3)
  - EPISTAXIS [None]
  - HAEMORRHAGE [None]
  - VENOUS THROMBOSIS LIMB [None]
